FAERS Safety Report 8916951 (Version 2)
Quarter: 2012Q4

REPORT INFORMATION
  Report Type: Report from Study
  Country: CM (occurrence: CM)
  Receive Date: 20121120
  Receipt Date: 20121204
  Transmission Date: 20130627
  Serious: Yes (Other)
  Sender: FDA-Public Use
  Company Number: CM-GILEAD-2012-0064918

PATIENT
  Age: 32 Year
  Sex: Female

DRUGS (3)
  1. EMTRICITABINE/TENOFOVIR DISOPROXIL FUMARATE [Suspect]
     Indication: HIV INFECTION
     Dosage: UNK, QD
     Route: 048
     Dates: start: 20120727
  2. DARUNAVIR [Suspect]
     Indication: HIV INFECTION
     Dosage: UNK, BID
     Dates: start: 20120727
  3. RITONAVIR [Suspect]
     Indication: HIV INFECTION
     Dosage: UNK, BID
     Dates: start: 20120727

REACTIONS (1)
  - Haemoglobin abnormal [Unknown]
